FAERS Safety Report 10044753 (Version 1)
Quarter: 2014Q1

REPORT INFORMATION
  Report Type: Spontaneous
  Country: JP (occurrence: JP)
  Receive Date: 20140328
  Receipt Date: 20140328
  Transmission Date: 20141002
  Serious: Yes (Other)
  Sender: FDA-Public Use
  Company Number: JP-ASTRAZENECA-2014SE19800

PATIENT
  Age: 49 Year
  Sex: Male

DRUGS (1)
  1. CARBOCAIN [Suspect]
     Indication: NERVE BLOCK

REACTIONS (1)
  - Convulsion [Unknown]
